FAERS Safety Report 23165835 (Version 5)
Quarter: 2024Q1

REPORT INFORMATION
  Report Type: Spontaneous
  Country: US (occurrence: US)
  Receive Date: 20231109
  Receipt Date: 20240306
  Transmission Date: 20240409
  Serious: No
  Sender: FDA-Public Use
  Company Number: US-PFIZER INC-PV202300179359

PATIENT
  Age: 12 Year
  Sex: Male
  Weight: 42.18 kg

DRUGS (2)
  1. GENOTROPIN [Suspect]
     Active Substance: SOMATROPIN
     Dosage: UNK
  2. CYPROHEPTADINE [Concomitant]
     Active Substance: CYPROHEPTADINE
     Indication: Headache
     Dosage: UNK

REACTIONS (5)
  - Wrong technique in device usage process [Unknown]
  - Drug dose omission by device [Not Recovered/Not Resolved]
  - Device issue [Unknown]
  - Device mechanical issue [Unknown]
  - Device leakage [Unknown]
